FAERS Safety Report 8137896-6 (Version None)
Quarter: 2012Q1

REPORT INFORMATION
  Report Type: 
  Country: None (occurrence: None)
  Receive Date: 20120215
  Receipt Date: 20120213
  Transmission Date: 20120608
  Serious: No
  Sender: FDA-Public Use
  Company Number: US-PFIZER INC-2012039756

PATIENT
  Sex: Female
  Weight: 58.05 kg

DRUGS (4)
  1. LYRICA [Suspect]
     Indication: BACK PAIN
     Dosage: 50 MG, 2X/DAY
     Route: 048
     Dates: start: 20120201
  2. VALIUM [Suspect]
     Indication: MUSCLE SPASMS
     Dosage: 5 MG, DAILY
  3. LYRICA [Suspect]
     Indication: MUSCLE SPASMS
     Dosage: 50 MG, DAILY
     Route: 048
     Dates: start: 20120208, end: 20120201
  4. ATENOLOL [Concomitant]
     Indication: HYPERTENSION
     Dosage: 25 MG, UNK
     Route: 048

REACTIONS (3)
  - MUSCLE SPASMS [None]
  - FATIGUE [None]
  - MALAISE [None]
